FAERS Safety Report 9452394 (Version 1)
Quarter: 2013Q3

REPORT INFORMATION
  Report Type: Spontaneous
  Country: US (occurrence: US)
  Receive Date: 20130812
  Receipt Date: 20130812
  Transmission Date: 20140515
  Serious: Yes (Hospitalization)
  Sender: FDA-Public Use
  Company Number: 2013SP005740

PATIENT
  Age: 15 Year
  Sex: Female

DRUGS (15)
  1. VANCOMYCIN [Suspect]
     Indication: CROHN^S DISEASE
     Route: 048
     Dates: start: 20130206, end: 20130206
  2. VANCOMYCIN [Suspect]
     Indication: INFECTION PROPHYLAXIS
     Route: 048
     Dates: start: 20130206, end: 20130206
  3. VANCOMYCIN [Suspect]
     Indication: CLOSTRIDIUM DIFFICILE INFECTION
     Route: 048
     Dates: start: 20130206, end: 20130206
  4. VANCOMYCIN [Suspect]
     Indication: CROHN^S DISEASE
     Route: 042
     Dates: start: 20130206, end: 20130208
  5. VANCOMYCIN [Suspect]
     Indication: INFECTION PROPHYLAXIS
     Route: 042
     Dates: start: 20130206, end: 20130208
  6. VANCOMYCIN [Suspect]
     Indication: CLOSTRIDIUM DIFFICILE INFECTION
     Route: 042
     Dates: start: 20130206, end: 20130208
  7. PIP/TAZO [Suspect]
     Indication: PRODUCT USED FOR UNKNOWN INDICATION
  8. ADALIMUMAB [Suspect]
     Indication: CROHN^S DISEASE
     Route: 058
     Dates: start: 20130118
  9. ADALIMUMAB [Suspect]
     Indication: CROHN^S DISEASE
     Route: 058
     Dates: start: 201303
  10. KETOROLAC TROMETHAMINE [Suspect]
     Indication: CROHN^S DISEASE
     Dates: start: 20130207, end: 20130207
  11. KETOROLAC TROMETHAMINE [Suspect]
     Indication: MYALGIA
     Dates: start: 20130207, end: 20130207
  12. DICYCLOVERINE HYDROCHLORIDE [Concomitant]
  13. LISINOPRIL [Concomitant]
  14. PREDNISONE [Concomitant]
  15. OMEPRAZOLE [Concomitant]

REACTIONS (1)
  - Renal failure [Recovering/Resolving]
